FAERS Safety Report 11734051 (Version 2)
Quarter: 2015Q4

REPORT INFORMATION
  Report Type: Report from Study
  Country: JP (occurrence: JP)
  Receive Date: 20151113
  Receipt Date: 20151212
  Transmission Date: 20160304
  Serious: Yes (Hospitalization)
  Sender: FDA-Public Use
  Company Number: JP-ASTRAZENECA-2015SF09537

PATIENT
  Age: 22947 Day
  Sex: Male
  Weight: 52 kg

DRUGS (18)
  1. IRESSA [Suspect]
     Active Substance: GEFITINIB
     Indication: NON-SMALL CELL LUNG CANCER
     Route: 048
     Dates: start: 20150310, end: 20150414
  2. PLETAAL [Concomitant]
     Active Substance: CILOSTAZOL
     Indication: CEREBRAL INFARCTION
     Route: 048
     Dates: start: 20150414, end: 20151112
  3. ANTEBATE [Concomitant]
     Active Substance: BETAMETHASONE DIPROPIONATE
     Indication: RASH
     Dosage: OPTIMAL DOSE AS REQUIRED
     Route: 062
     Dates: start: 20150317, end: 20151104
  4. BESOFTEN [Concomitant]
     Active Substance: SODIUM ALGINATE
     Indication: RASH
     Dosage: OPTIMAL DOSE AS REQUIRED
     Route: 062
     Dates: start: 20150216, end: 20151104
  5. MINOCYCLINE HYDROCHLORIDE. [Concomitant]
     Active Substance: MINOCYCLINE HYDROCHLORIDE
     Indication: RASH
     Route: 048
     Dates: start: 20150310, end: 20151129
  6. LOPEMIN [Concomitant]
     Active Substance: LOPERAMIDE HYDROCHLORIDE
     Indication: DIARRHOEA
     Route: 048
     Dates: start: 20150424, end: 20151106
  7. KINDAVATE [Concomitant]
     Indication: RASH
     Dosage: OPTIMAL DOSE AS REQUIRED
     Route: 062
     Dates: start: 20150224, end: 20151104
  8. WAKADENIN [Concomitant]
     Indication: DECREASED APPETITE
     Route: 042
     Dates: start: 20151006, end: 201511
  9. IRESSA [Suspect]
     Active Substance: GEFITINIB
     Indication: NON-SMALL CELL LUNG CANCER
     Route: 048
     Dates: start: 20150216, end: 20150306
  10. IRESSA [Suspect]
     Active Substance: GEFITINIB
     Indication: NON-SMALL CELL LUNG CANCER
     Route: 048
     Dates: start: 20150422, end: 20151006
  11. PLAVIX [Concomitant]
     Active Substance: CLOPIDOGREL BISULFATE
     Indication: CEREBRAL INFARCTION
     Route: 048
     Dates: start: 201307, end: 20151112
  12. MEDICON [Concomitant]
     Active Substance: DEXTROMETHORPHAN HYDROBROMIDE
     Indication: COUGH
     Route: 048
     Dates: start: 20150331
  13. IRESSA [Suspect]
     Active Substance: GEFITINIB
     Indication: NON-SMALL CELL LUNG CANCER
     Route: 048
     Dates: start: 20151021, end: 20151104
  14. VITAMIN C [Concomitant]
     Active Substance: ASCORBIC ACID
     Indication: DECREASED APPETITE
     Route: 042
     Dates: start: 20151006, end: 201511
  15. OLMESARTAN MEDOXOMIL. [Suspect]
     Active Substance: OLMESARTAN MEDOXOMIL
     Indication: HYPERTENSION
     Route: 048
     Dates: start: 2012, end: 20151104
  16. TAKEPRON [Concomitant]
     Active Substance: LANSOPRAZOLE
     Indication: GASTRITIS PROPHYLAXIS
     Route: 048
     Dates: start: 2012, end: 20151104
  17. PROMAC [Concomitant]
     Active Substance: NITROFURANTOIN
     Indication: DYSGEUSIA
     Route: 048
     Dates: start: 20150707, end: 20151128
  18. PHYSIO 140 [Concomitant]
     Indication: DECREASED APPETITE
     Route: 042
     Dates: start: 20151006, end: 201511

REACTIONS (1)
  - Cerebral infarction [Recovered/Resolved with Sequelae]

NARRATIVE: CASE EVENT DATE: 20151105
